FAERS Safety Report 10244580 (Version 1)
Quarter: 2014Q2

REPORT INFORMATION
  Report Type: Spontaneous
  Country: US (occurrence: US)
  Receive Date: 20140618
  Receipt Date: 20140618
  Transmission Date: 20141212
  Serious: Yes (Hospitalization)
  Sender: FDA-Public Use
  Company Number: US-TEVA-488090USA

PATIENT
  Age: 57 Year
  Sex: Female
  Weight: 54.48 kg

DRUGS (3)
  1. FENTORA [Suspect]
     Indication: BREAST CANCER
     Dates: end: 20140605
  2. FENTORA [Suspect]
     Indication: BACK DISORDER
  3. FENTORA [Suspect]
     Indication: JOINT INJURY

REACTIONS (6)
  - Sepsis [Recovered/Resolved]
  - Pneumonia [Recovered/Resolved]
  - Pyrexia [Recovered/Resolved]
  - Malaise [Recovered/Resolved]
  - Drug withdrawal syndrome [Not Recovered/Not Resolved]
  - Off label use [Unknown]
